FAERS Safety Report 4470154-X (Version None)
Quarter: 2004Q3

REPORT INFORMATION
  Report Type: 
  Country: None (occurrence: None)
  Receive Date: 20040910
  Receipt Date: 20040728
  Transmission Date: 20050211
  Serious: No
  Sender: FDA-Public Use
  Company Number: 2004225772US

PATIENT
  Age: 73 Year
  Sex: Female
  Weight: 61.2 kg

DRUGS (2)
  1. BEXTRA [Suspect]
     Dosage: 10 MG, QD, ORAL
     Route: 048
     Dates: start: 20040726
  2. MULTIVITAMIN [Concomitant]

REACTIONS (2)
  - EYE PAIN [None]
  - KERATOCONJUNCTIVITIS SICCA [None]
